FAERS Safety Report 8236024-6 (Version None)
Quarter: 2012Q1

REPORT INFORMATION
  Report Type: 
  Country: None (occurrence: None)
  Receive Date: 20120326
  Receipt Date: 20120320
  Transmission Date: 20120608
  Serious: Yes (Other)
  Sender: FDA-Public Use
  Company Number: US-ASTRAZENECA-2011SE74408

PATIENT
  Age: 57 Year
  Sex: Male
  Weight: 181.4 kg

DRUGS (7)
  1. THYROID MEDICATION [Concomitant]
     Indication: THYROID DISORDER
  2. TRAMADOL HCL [Concomitant]
     Indication: ARTHRITIS
  3. MELOXICAM [Concomitant]
     Indication: JOINT INJURY
  4. TRAMADOL HCL [Concomitant]
     Indication: OSTEOARTHRITIS
  5. SYMBICORT [Suspect]
     Indication: CHRONIC OBSTRUCTIVE PULMONARY DISEASE
     Dosage: 160/4.5 MG TWO PUFFS IN THE MORNING AND TWO PUFFS IN THE EVENING
     Route: 055
  6. LASIX [Concomitant]
     Indication: CARDIAC FAILURE CONGESTIVE
  7. SYMBICORT [Suspect]
     Indication: DYSPNOEA
     Dosage: 160/4.5 MG TWO PUFFS IN THE MORNING AND TWO PUFFS IN THE EVENING
     Route: 055

REACTIONS (3)
  - CARDIAC FAILURE [None]
  - CATARACT [None]
  - BLINDNESS [None]
